FAERS Safety Report 6416365-5 (Version None)
Quarter: 2009Q4

REPORT INFORMATION
  Report Type: 
  Country: None (occurrence: None)
  Receive Date: 20091022
  Receipt Date: 20091013
  Transmission Date: 20100525
  Serious: Yes (Hospitalization)
  Sender: FDA-Public Use
  Company Number: GXKR2007GB04218

PATIENT
  Age: 57 Year
  Sex: Female

DRUGS (8)
  1. BENDROFLUMETHIAZIDE [Suspect]
     Indication: CEREBROVASCULAR ACCIDENT
     Dosage: 2.5 MG, QD, ORAL
     Route: 048
     Dates: end: 20070119
  2. FUROSEMIDE [Suspect]
     Indication: MYOCARDIAL ISCHAEMIA
     Dosage: 40 MG, QD, ORAL
     Route: 048
     Dates: end: 20070119
  3. RAMIPRIL [Suspect]
     Indication: CEREBROVASCULAR ACCIDENT
     Dosage: 5 MG, QD, ORAL
     Route: 048
     Dates: end: 20070130
  4. CARBAMAZEPINE [Suspect]
     Indication: CONVULSION
     Dosage: 200 MG, BID, ORAL
     Route: 048
     Dates: end: 20070119
  5. ATORVASTATIN CALCIUM [Concomitant]
  6. CALCICHEW (CALCIUM CARBONATE) [Concomitant]
  7. GLICLAZIDE (GLICLAZIDE) [Concomitant]
  8. METFORMIN HCL [Concomitant]

REACTIONS (2)
  - CONVULSION [None]
  - INAPPROPRIATE ANTIDIURETIC HORMONE SECRETION [None]
